FAERS Safety Report 19145984 (Version 5)
Quarter: 2021Q3

REPORT INFORMATION
  Report Type: Report from Study
  Country: GB (occurrence: GB)
  Receive Date: 20210416
  Receipt Date: 20210802
  Transmission Date: 20211014
  Serious: Yes (Hospitalization, Other)
  Sender: FDA-Public Use
  Company Number: GB-MYLANLABS-2021M1022161

PATIENT
  Age: 77 Year
  Sex: Female

DRUGS (6)
  1. SANDOSTATIN LAR DEPOT [Suspect]
     Active Substance: OCTREOTIDE ACETATE
     Dosage: 30 MILLIGRAM, MONTHLY (30 MG, QMO (EVERY 28 DAYS))
     Route: 030
  2. SANDOSTATIN LAR DEPOT [Suspect]
     Active Substance: OCTREOTIDE ACETATE
     Dosage: 30 MILLIGRAM, MONTHLY
     Route: 030
  3. SANDOSTATIN LAR DEPOT [Suspect]
     Active Substance: OCTREOTIDE ACETATE
     Dosage: 30 MILLIGRAM, MONTHLY (30 MG  QMO (EVERY 28 DAYS))
     Route: 030
     Dates: start: 202006
  4. SANDOSTATIN LAR DEPOT [Suspect]
     Active Substance: OCTREOTIDE ACETATE
     Dosage: 30 MILLIGRAM, MONTHLY (30 MG, QMO (EVERY 28 DAYS))
     Route: 030
     Dates: start: 202005
  5. EVEROLIMUS. [Suspect]
     Active Substance: EVEROLIMUS
     Dosage: UNK
     Route: 065
  6. SANDOSTATIN LAR DEPOT [Suspect]
     Active Substance: OCTREOTIDE ACETATE
     Indication: NEUROENDOCRINE TUMOUR
     Dosage: 30 MILLIGRAM, MONTHLY (30 MG, QMO (EVERY 28 DAYS))
     Route: 030
     Dates: start: 20200601

REACTIONS (26)
  - Blood iron decreased [Unknown]
  - Urinary tract infection [Recovering/Resolving]
  - Liver function test abnormal [Not Recovered/Not Resolved]
  - Abdominal pain upper [Unknown]
  - Head injury [Unknown]
  - Muscular weakness [Unknown]
  - Arthralgia [Unknown]
  - Pyrexia [Recovering/Resolving]
  - Peripheral swelling [Recovering/Resolving]
  - Erythema [Unknown]
  - Malignant neoplasm progression [Unknown]
  - Renal impairment [Unknown]
  - Neuroendocrine tumour [Unknown]
  - Haemoglobin abnormal [Recovering/Resolving]
  - Haemoglobin decreased [Recovering/Resolving]
  - Swelling face [Unknown]
  - Fatigue [Unknown]
  - Nausea [Unknown]
  - Decreased appetite [Not Recovered/Not Resolved]
  - Vomiting [Recovered/Resolved]
  - Constipation [Unknown]
  - Spinal cord compression [Unknown]
  - Weight decreased [Not Recovered/Not Resolved]
  - Fall [Unknown]
  - Abdominal distension [Unknown]
  - Pruritus [Unknown]

NARRATIVE: CASE EVENT DATE: 20210101
